FAERS Safety Report 10198158 (Version 2)
Quarter: 2016Q2

REPORT INFORMATION
  Report Type: Spontaneous
  Country: US (occurrence: US)
  Receive Date: 20140527
  Receipt Date: 20160601
  Transmission Date: 20160815
  Serious: No
  Sender: FDA-Public Use
  Company Number: US-NOVEN-13US007513

PATIENT
  Age: 13 Year
  Sex: Male

DRUGS (2)
  1. DAYTRANA [Suspect]
     Active Substance: METHYLPHENIDATE
     Indication: OPPOSITIONAL DEFIANT DISORDER
  2. DAYTRANA [Suspect]
     Active Substance: METHYLPHENIDATE
     Indication: ATTENTION DEFICIT/HYPERACTIVITY DISORDER
     Dosage: 2 PATCHES DAILY
     Route: 062
     Dates: start: 2009, end: 201506

REACTIONS (7)
  - Decreased appetite [Unknown]
  - Wrong technique in product usage process [Unknown]
  - Hypersomnia [Unknown]
  - Overdose [Unknown]
  - Drug dose omission [Unknown]
  - Disturbance in attention [Unknown]
  - Off label use [Unknown]

NARRATIVE: CASE EVENT DATE: 201506
